APPROVED DRUG PRODUCT: ACETYLCYSTEINE
Active Ingredient: ACETYLCYSTEINE
Strength: 20%
Dosage Form/Route: SOLUTION;INHALATION, ORAL
Application: A214177 | Product #002 | TE Code: AN
Applicant: CONBA USA INC
Approved: Mar 14, 2025 | RLD: No | RS: No | Type: RX